FAERS Safety Report 4387085-6 (Version None)
Quarter: 2004Q2

REPORT INFORMATION
  Report Type: 
  Country: None (occurrence: None)
  Receive Date: 20040630
  Receipt Date: 20040305
  Transmission Date: 20050107
  Serious: No
  Sender: FDA-Public Use
  Company Number: US-GLAXOSMITHKLINE-A0501410A

PATIENT
  Age: 58 Year
  Sex: Male

DRUGS (11)
  1. ADVAIR HFA [Suspect]
     Route: 055
  2. COMBIVENT [Concomitant]
  3. PRILOSEC [Concomitant]
  4. ZOLOFT [Concomitant]
  5. ATROVENT [Concomitant]
  6. TESSALON [Concomitant]
  7. NORVASC [Concomitant]
  8. LIPITOR [Concomitant]
  9. KLONOPIN [Concomitant]
  10. SINGULAIR [Concomitant]
  11. ZETIA [Concomitant]

REACTIONS (1)
  - DYSPNOEA [None]
